FAERS Safety Report 24332627 (Version 1)
Quarter: 2024Q3

REPORT INFORMATION
  Report Type: Spontaneous
  Country: US (occurrence: None)
  Receive Date: 20240917
  Receipt Date: 20240917
  Transmission Date: 20241016
  Serious: Yes (Other)
  Sender: Public
  Company Number: None

PATIENT
  Age: 10 Year
  Sex: Female
  Weight: 50.9 kg

DRUGS (1)
  1. ASPARLAS [Suspect]
     Active Substance: CALASPARGASE PEGOL-MKNL
     Indication: B precursor type acute leukaemia
     Dosage: OTHER FREQUENCY : PER PROTOCOL;?
     Route: 042
     Dates: start: 20240310, end: 20240607

REACTIONS (7)
  - Infusion related reaction [None]
  - Nausea [None]
  - Vomiting [None]
  - Ear pruritus [None]
  - Cough [None]
  - Anaphylactic reaction [None]
  - Tachycardia [None]

NARRATIVE: CASE EVENT DATE: 20240607
